FAERS Safety Report 15844012 (Version 4)
Quarter: 2019Q1

REPORT INFORMATION
  Report Type: Spontaneous
  Country: GA (occurrence: GA)
  Receive Date: 20190118
  Receipt Date: 20190227
  Transmission Date: 20190417
  Serious: Yes (Hospitalization)
  Sender: FDA-Public Use
  Company Number: PHHY2019GA008255

PATIENT
  Age: 34 Year
  Sex: Male

DRUGS (5)
  1. CA-C 1000 [Concomitant]
     Indication: FATIGUE
     Dosage: UNK
     Route: 065
  2. COARTEM [Suspect]
     Active Substance: ARTEMETHER\LUMEFANTRINE
     Indication: MALARIA
     Dosage: 1 DF, BID
     Route: 048
  3. DOLIPRANE [Concomitant]
     Active Substance: ACETAMINOPHEN
     Indication: PRODUCT USED FOR UNKNOWN INDICATION
     Dosage: 1 G, UNK
     Route: 065
  4. OROKEN [Concomitant]
     Active Substance: CEFIXIME
     Indication: TYPHOID FEVER
     Dosage: 200 MG, BID (1 TABLET MORNING AND 1TABLET IN THE EVENING)
     Route: 065
  5. BRUFEN [Concomitant]
     Active Substance: IBUPROFEN
     Indication: MYALGIA
     Dosage: 400 MG, UNK
     Route: 065

REACTIONS (4)
  - Pain [Recovered/Resolved]
  - Pyrexia [Recovered/Resolved]
  - Headache [Recovered/Resolved]
  - Asthenia [Recovered/Resolved]

NARRATIVE: CASE EVENT DATE: 20181230
